FAERS Safety Report 12435012 (Version 1)
Quarter: 2016Q2

REPORT INFORMATION
  Report Type: Spontaneous
  Country: US (occurrence: US)
  Receive Date: 20160603
  Receipt Date: 20160603
  Transmission Date: 20160815
  Serious: No
  Sender: FDA-Public Use
  Company Number: US-ROCHE-1608447

PATIENT
  Sex: Male

DRUGS (11)
  1. CABERGOLINE. [Concomitant]
     Active Substance: CABERGOLINE
     Route: 048
  2. PREDNISONE. [Concomitant]
     Active Substance: PREDNISONE
     Dosage: 10- 15 MG
     Route: 048
  3. NORDITROPIN [Concomitant]
     Active Substance: SOMATROPIN
     Route: 058
  4. SIMETHICONE (DIMETHICONE) [Concomitant]
     Active Substance: DIMETHICONE
     Route: 048
  5. ATIVAN [Concomitant]
     Active Substance: LORAZEPAM
     Route: 048
  6. ANDROGEL [Concomitant]
     Active Substance: TESTOSTERONE
     Route: 062
  7. LEVOXYL [Concomitant]
     Active Substance: LEVOTHYROXINE SODIUM
     Route: 065
  8. DEXILANT [Concomitant]
     Active Substance: DEXLANSOPRAZOLE
     Route: 048
  9. KLONOPIN [Suspect]
     Active Substance: CLONAZEPAM
     Indication: FACIAL PAIN
     Route: 065
     Dates: start: 200804, end: 200908
  10. PAXIL (UNITED STATES) [Concomitant]
     Route: 048
  11. AMBIEN [Concomitant]
     Active Substance: ZOLPIDEM TARTRATE
     Route: 048

REACTIONS (3)
  - Food poisoning [Unknown]
  - Nausea [Unknown]
  - Abdominal pain lower [Recovering/Resolving]
